FAERS Safety Report 5055454-7 (Version None)
Quarter: 2006Q3

REPORT INFORMATION
  Report Type: 
  Country: None (occurrence: None)
  Receive Date: 20060714
  Receipt Date: 20060626
  Transmission Date: 20061208
  Serious: Yes (Death, Hospitalization)
  Sender: FDA-Public Use
  Company Number: 2006RR-02861

PATIENT
  Age: 65 Year
  Sex: Male

DRUGS (4)
  1. SIMVASTATIN [Suspect]
     Indication: HYPERCHOLESTEROLAEMIA
     Dosage: SEE IMAGE
     Route: 048
  2. SIMVASTATIN [Suspect]
     Indication: HYPERCHOLESTEROLAEMIA
     Dosage: SEE IMAGE
     Route: 048
  3. ATENOLOL [Concomitant]
  4. ENALAPRIL MALEATE [Concomitant]

REACTIONS (9)
  - ABDOMINAL DISTENSION [None]
  - ABDOMINAL TENDERNESS [None]
  - BODY TEMPERATURE INCREASED [None]
  - COLITIS ULCERATIVE [None]
  - DEHYDRATION [None]
  - LARGE INTESTINE PERFORATION [None]
  - MEGACOLON [None]
  - MULTI-ORGAN FAILURE [None]
  - PROCTALGIA [None]
